FAERS Safety Report 25623776 (Version 2)
Quarter: 2025Q3

REPORT INFORMATION
  Report Type: Spontaneous
  Country: CA (occurrence: CA)
  Receive Date: 20250730
  Receipt Date: 20250822
  Transmission Date: 20251021
  Serious: Yes (Other)
  Sender: PFIZER
  Company Number: CA-PFIZER INC-202500140747

PATIENT
  Age: 20 Year
  Sex: Female

DRUGS (2)
  1. RUXIENCE [Suspect]
     Active Substance: RITUXIMAB-PVVR
     Indication: Systemic lupus erythematosus
     Route: 042
     Dates: start: 20250709, end: 20250709
  2. RUXIENCE [Suspect]
     Active Substance: RITUXIMAB-PVVR
     Route: 042
     Dates: start: 20250816

REACTIONS (9)
  - Heart rate increased [Unknown]
  - Lacrimation increased [Unknown]
  - Nausea [Not Recovered/Not Resolved]
  - Urticaria [Recovering/Resolving]
  - Chest pain [Recovering/Resolving]
  - Ear infection [Not Recovered/Not Resolved]
  - Streptococcal infection [Not Recovered/Not Resolved]
  - Fatigue [Recovered/Resolved]
  - Abdominal distension [Recovered/Resolved]

NARRATIVE: CASE EVENT DATE: 20250101
